FAERS Safety Report 8434205-X (Version None)
Quarter: 2012Q2

REPORT INFORMATION
  Report Type: 
  Country: None (occurrence: None)
  Receive Date: 20120613
  Receipt Date: 20120612
  Transmission Date: 20120825
  Serious: Yes (Other)
  Sender: FDA-Public Use
  Company Number: US-FRI-1000025809

PATIENT
  Sex: Male

DRUGS (10)
  1. LISINOPRIL [Concomitant]
     Dosage: 40 MG
  2. WARFARIN SODIUM [Suspect]
     Indication: ATRIAL FIBRILLATION
     Dosage: 5 MG
     Route: 048
     Dates: start: 20040101
  3. ADVAIR DISKUS 100/50 [Concomitant]
  4. ALLOPURINOL [Concomitant]
     Dosage: 300 MG
  5. GLIMEPIRIDE [Concomitant]
     Dosage: 2 MG
  6. TOPROL ER [Concomitant]
     Dosage: 100 MG
  7. SIMVASTATIN [Concomitant]
     Dosage: 40 MG
  8. SPIRIVA [Concomitant]
  9. DALIRESP [Suspect]
     Indication: CHRONIC OBSTRUCTIVE PULMONARY DISEASE
     Dosage: 500 MCG
     Route: 048
     Dates: start: 20110927, end: 20111010
  10. METFORMIN HCL [Concomitant]
     Dosage: 1000 MG

REACTIONS (3)
  - GASTROINTESTINAL HAEMORRHAGE [None]
  - INTERNATIONAL NORMALISED RATIO INCREASED [None]
  - DRUG INTERACTION [None]
